FAERS Safety Report 4483426-X (Version None)
Quarter: 2004Q4

REPORT INFORMATION
  Report Type: 
  Country: None (occurrence: None)
  Receive Date: 20041020
  Receipt Date: 20041006
  Transmission Date: 20050328
  Serious: No
  Sender: FDA-Public Use
  Company Number: 2002UW00302

PATIENT
  Age: 16 Month
  Sex: Male

DRUGS (2)
  1. DIPRIVAN [Suspect]
     Indication: SEDATION
     Dates: start: 19910416
  2. FENTANYL [Concomitant]

REACTIONS (7)
  - CARDIO-RESPIRATORY ARREST [None]
  - CEREBRAL PALSY [None]
  - CHROMATURIA [None]
  - HYPOXIC ENCEPHALOPATHY [None]
  - INJURY [None]
  - OVERDOSE [None]
  - URINARY RETENTION [None]
